FAERS Safety Report 11772745 (Version 1)
Quarter: 2015Q4

REPORT INFORMATION
  Report Type: Spontaneous
  Country: FR (occurrence: FR)
  Receive Date: 20151124
  Receipt Date: 20151124
  Transmission Date: 20160304
  Serious: Yes (Hospitalization)
  Sender: FDA-Public Use
  Company Number: FR-PFIZER INC-2015390801

PATIENT
  Age: 29 Year
  Sex: Male

DRUGS (4)
  1. BI-PROFENID [Suspect]
     Active Substance: KETOPROFEN
     Indication: SUICIDE ATTEMPT
     Dosage: 10 DF, SINGLE
     Dates: start: 20060407, end: 20060407
  2. DAFALGAN [Suspect]
     Active Substance: ACETAMINOPHEN
     Indication: SUICIDE ATTEMPT
     Dosage: 37 DF, SINGLE
     Dates: start: 20060407, end: 20060407
  3. DI-ANTALVIC [Suspect]
     Active Substance: ACETAMINOPHEN\PROPOXYPHENE HYDROCHLORIDE
     Indication: SUICIDE ATTEMPT
     Dosage: 20 DF, SINGLE
     Route: 048
     Dates: start: 20060407, end: 20060407
  4. RHINADVIL [Suspect]
     Active Substance: IBUPROFEN\PSEUDOEPHEDRINE HYDROCHLORIDE
     Indication: SUICIDE ATTEMPT
     Dosage: 20 DF, SINGLE
     Route: 048
     Dates: start: 20060407, end: 20060407

REACTIONS (1)
  - Hepatocellular injury [Unknown]

NARRATIVE: CASE EVENT DATE: 20060408
